FAERS Safety Report 4405565-1 (Version None)
Quarter: 2004Q3

REPORT INFORMATION
  Report Type: 
  Country: None (occurrence: None)
  Receive Date: 20040723
  Receipt Date: 20030930
  Transmission Date: 20050211
  Serious: No
  Sender: FDA-Public Use
  Company Number: US-GLAXOSMITHKLINE-A0428040A

PATIENT
  Age: 60 Year
  Sex: Female

DRUGS (15)
  1. AVANDIA [Suspect]
     Dosage: 4MG PER DAY
     Route: 048
     Dates: start: 20010101, end: 20030924
  2. SYNTHROID [Concomitant]
  3. GLUCOPHAGE [Concomitant]
  4. PRANDIN [Concomitant]
  5. ALTACE [Concomitant]
  6. COZAAR [Concomitant]
  7. NOLVADEX [Concomitant]
  8. DETROL LA [Concomitant]
  9. CELEXA [Concomitant]
  10. DURATUSS G [Concomitant]
  11. DIFLUCAN [Concomitant]
  12. ULTRAM [Concomitant]
  13. MULTI-VITAMIN [Concomitant]
  14. ASPIRIN [Concomitant]
  15. CALTRATE PLUS [Concomitant]

REACTIONS (1)
  - FATIGUE [None]
